FAERS Safety Report 7090180-4 (Version None)
Quarter: 2010Q4

REPORT INFORMATION
  Report Type: 
  Country: None (occurrence: None)
  Receive Date: 20101109
  Receipt Date: 20101101
  Transmission Date: 20110411
  Serious: Yes (Other)
  Sender: FDA-Public Use
  Company Number: US-RB-016370-10

PATIENT
  Age: 36 Year
  Sex: Male

DRUGS (2)
  1. SUBOXONE [Suspect]
     Indication: PRODUCT USED FOR UNKNOWN INDICATION
     Dosage: UNKNOWN DOSING DETIALS
     Route: 065
  2. SUBOXONE [Suspect]
     Indication: PRODUCT USED FOR UNKNOWN INDICATION
     Dosage: DOSING INFORMATION UNKNOWN; SUBLINGUAL FILM
     Route: 065

REACTIONS (6)
  - DIABETES MELLITUS [None]
  - DRUG DEPENDENCE [None]
  - INSOMNIA [None]
  - OVERDOSE [None]
  - SELF-INJURIOUS IDEATION [None]
  - SUBSTANCE ABUSE [None]
